FAERS Safety Report 17847699 (Version 1)
Quarter: 2020Q2

REPORT INFORMATION
  Report Type: Spontaneous
  Country: FR (occurrence: FR)
  Receive Date: 20200601
  Receipt Date: 20200601
  Transmission Date: 20200714
  Serious: Yes (Death)
  Sender: FDA-Public Use
  Company Number: FR-009507513-2006FRA000215

PATIENT
  Age: 75 Year
  Sex: Male
  Weight: 73 kg

DRUGS (3)
  1. CARBOPLATIN ACCORD [Suspect]
     Active Substance: CARBOPLATIN
     Indication: LUNG ADENOCARCINOMA STAGE IV
     Dosage: 340 MILLIGRAM, ONCE
     Route: 042
     Dates: start: 20200312, end: 20200312
  2. KEYTRUDA [Suspect]
     Active Substance: PEMBROLIZUMAB
     Indication: LUNG ADENOCARCINOMA STAGE IV
     Dosage: 200 MILLIGRAM, ONCE
     Route: 042
     Dates: start: 20200312, end: 20200312
  3. ALIMTA [Suspect]
     Active Substance: PEMETREXED DISODIUM
     Indication: LUNG ADENOCARCINOMA STAGE IV
     Dosage: 945 MILLIGRAM, ONCE
     Route: 042
     Dates: start: 20200312, end: 20200312

REACTIONS (4)
  - Mucosal inflammation [Fatal]
  - Febrile bone marrow aplasia [Fatal]
  - Diarrhoea [Fatal]
  - Renal failure [Fatal]

NARRATIVE: CASE EVENT DATE: 20200322
